FAERS Safety Report 9888898 (Version 1)
Quarter: 2014Q1

REPORT INFORMATION
  Report Type: Spontaneous
  Country: US (occurrence: None)
  Receive Date: 20140210
  Receipt Date: 20140210
  Transmission Date: 20141002
  Serious: No
  Sender: FDA-Public Use
  Company Number: None

PATIENT
  Age: 75 Year
  Sex: Male
  Weight: 83.92 kg

DRUGS (1)
  1. ZICAM COLD REMEDY SWABS [Suspect]
     Indication: NASOPHARYNGITIS
     Dates: start: 20100101, end: 20101231

REACTIONS (1)
  - Anosmia [None]
